FAERS Safety Report 18471597 (Version 2)
Quarter: 2020Q4

REPORT INFORMATION
  Report Type: Spontaneous
  Country: US (occurrence: US)
  Receive Date: 20201105
  Receipt Date: 20201113
  Transmission Date: 20210114
  Serious: Yes (Hospitalization, Other)
  Sender: FDA-Public Use
  Company Number: US-BAXTER-2020BAX022548

PATIENT
  Age: 60 Year
  Sex: Female

DRUGS (1)
  1. DOXIL [Suspect]
     Active Substance: DOXORUBICIN HYDROCHLORIDE
     Indication: HEPATOCELLULAR CARCINOMA
     Dosage: TACE OF LC BEADS; CYCLICAL
     Route: 065

REACTIONS (2)
  - Pneumonitis [Recovering/Resolving]
  - Acute lung injury [Recovering/Resolving]
